FAERS Safety Report 4398957-0 (Version None)
Quarter: 2004Q3

REPORT INFORMATION
  Report Type: 
  Country: None (occurrence: None)
  Receive Date: 20040715
  Receipt Date: 20040713
  Transmission Date: 20050211
  Serious: Yes (Hospitalization)
  Sender: FDA-Public Use
  Company Number: IT-MERCK-0407ITA00013

PATIENT
  Age: 60 Year
  Sex: Male

DRUGS (3)
  1. CEFTAZIDIME [Suspect]
     Indication: PROSTATITIS
     Route: 030
     Dates: start: 20040617, end: 20040622
  2. DIPYRONE [Concomitant]
     Route: 048
  3. NOROXIN [Suspect]
     Indication: PROSTATITIS
     Route: 048
     Dates: start: 20040623, end: 20040629

REACTIONS (1)
  - ECZEMA INFECTED [None]
